FAERS Safety Report 20859352 (Version 1)
Quarter: 2022Q2

REPORT INFORMATION
  Report Type: Spontaneous
  Country: ES (occurrence: ES)
  Receive Date: 20220523
  Receipt Date: 20220523
  Transmission Date: 20220721
  Serious: Yes (Hospitalization)
  Sender: FDA-Public Use
  Company Number: None

PATIENT
  Age: 73 Year
  Sex: Female

DRUGS (8)
  1. BISOPROLOL. [Suspect]
     Active Substance: BISOPROLOL FUMARATE
     Indication: Product used for unknown indication
     Dosage: 2.5 MG, QD
     Route: 048
     Dates: start: 20210713, end: 20220427
  2. RIVASTIGMINE [Suspect]
     Active Substance: RIVASTIGMINE
     Indication: Product used for unknown indication
     Dosage: 9.5 MG, QD (9,5 MG/24 H PARCHE TRANSDERMICO, 60 PARCHES)
     Route: 062
     Dates: start: 20170201, end: 20220427
  3. DEPRAX [Concomitant]
     Indication: Product used for unknown indication
     Dosage: 100 MG, QD (COMPRIMIDOS RECUBIERTOS CON PELICULA EFG ,30 COMPRIMIDOS)
     Route: 048
     Dates: start: 20190222
  4. NOLOTIL [Concomitant]
     Indication: Product used for unknown indication
     Dosage: 575 MG, Q8H (CAPSULAS DURAS, 20 CAPSULAS)
     Route: 048
     Dates: start: 20220422
  5. CHOLECALCIFEROL [Concomitant]
     Active Substance: CHOLECALCIFEROL
     Indication: Product used for unknown indication
     Dosage: 2500 IU (4 FRASCOS DE 2,5 ML)
     Route: 048
     Dates: start: 20220422
  6. PROLIA [Concomitant]
     Active Substance: DENOSUMAB
     Indication: Product used for unknown indication
     Dosage: 60 MG (6 MONTHS) (1 JERINGA PRECARGADA DE 1 ML)
     Route: 058
     Dates: start: 20220422
  7. ENOXAPARIN SODIUM [Concomitant]
     Active Substance: ENOXAPARIN SODIUM
     Indication: Product used for unknown indication
     Dosage: 40 MG, QD (4.000 UI (40 MG)/ 0,4 ML SOLUCION INYECTABLE EN JERINGA PRECARGADA , 30 JERINGAS PRECARGA
     Route: 058
     Dates: start: 20220419
  8. CALCIUM CARBONATE\CHOLECALCIFEROL [Concomitant]
     Active Substance: CALCIUM CARBONATE\CHOLECALCIFEROL
     Indication: Product used for unknown indication
     Dosage: 1 DOSAGE FORM, QD (600 MG/2000 UI COMPRIMIDOS BUCODISPERSABLES, 30 COMPRIMIDOS)
     Route: 048
     Dates: start: 20220422

REACTIONS (2)
  - Bradyphrenia [Recovered/Resolved]
  - Hypotension [Recovered/Resolved]

NARRATIVE: CASE EVENT DATE: 20220426
